FAERS Safety Report 6026613-1 (Version None)
Quarter: 2008Q4

REPORT INFORMATION
  Report Type: 
  Country: None (occurrence: None)
  Receive Date: 20081231
  Receipt Date: 20081229
  Transmission Date: 20090506
  Serious: Yes (Other)
  Sender: FDA-Public Use
  Company Number: A0761847A

PATIENT
  Age: 53 Year
  Sex: Female

DRUGS (1)
  1. UREA HYDROGEN PEROXIDE (FORMULATION UNKNOWN) (UREA HYDROGEN PEROXIDE) [Suspect]
     Indication: DRUG USE FOR UNKNOWN INDICATION
     Dosage: AURAL

REACTIONS (2)
  - EAR DISCOMFORT [None]
  - HEARING IMPAIRED [None]
